FAERS Safety Report 18040528 (Version 1)
Quarter: 2020Q3

REPORT INFORMATION
  Report Type: Spontaneous
  Country: CN (occurrence: CN)
  Receive Date: 20200717
  Receipt Date: 20200717
  Transmission Date: 20201103
  Serious: Yes (Other)
  Sender: FDA-Public Use
  Company Number: CN-NOVOPROD-739932

PATIENT
  Age: 52 Year
  Sex: Female
  Weight: 54.5 kg

DRUGS (4)
  1. LANTUS [Concomitant]
     Active Substance: INSULIN GLARGINE
     Indication: DIABETIC NEPHROPATHY
     Dosage: 26 IU, QD
     Route: 058
     Dates: start: 20180416, end: 20200625
  2. TRESIBA [Suspect]
     Active Substance: INSULIN DEGLUDEC
     Indication: DIABETIC NEPHROPATHY
     Dosage: 30 IU, QD
     Route: 058
     Dates: start: 20200626, end: 20200701
  3. LANTUS [Concomitant]
     Active Substance: INSULIN GLARGINE
     Dosage: 26 IU, QD
     Route: 058
     Dates: start: 20200701
  4. NOVORAPID [Concomitant]
     Active Substance: INSULIN ASPART
     Indication: DIABETIC NEPHROPATHY
     Dosage: 18 IU, TID (BEFORE THREE MEALS)
     Route: 058
     Dates: start: 20180416, end: 20200703

REACTIONS (4)
  - Chills [Recovering/Resolving]
  - Muscle tightness [Recovering/Resolving]
  - Pyrexia [Recovering/Resolving]
  - Neutropenia [Recovering/Resolving]

NARRATIVE: CASE EVENT DATE: 20200701
